FAERS Safety Report 6793980-0 (Version None)
Quarter: 2010Q2

REPORT INFORMATION
  Report Type: 
  Country: None (occurrence: None)
  Receive Date: 20100624
  Receipt Date: 20021118
  Transmission Date: 20101027
  Serious: No
  Sender: FDA-Public Use
  Company Number: US-PFIZER INC-23100171

PATIENT

DRUGS (3)
  1. ARGATROBAN [Suspect]
     Indication: THROMBOSIS PROPHYLAXIS
     Route: 042
     Dates: start: 20021112
  2. CISPLATIN [Concomitant]
     Indication: CHEMOTHERAPY
  3. FLUOROURACIL [Concomitant]
     Indication: CHEMOTHERAPY

REACTIONS (1)
  - NEUTROPENIA [None]
